FAERS Safety Report 20727200 (Version 1)
Quarter: 2022Q2

REPORT INFORMATION
  Report Type: Spontaneous
  Country: CN (occurrence: CN)
  Receive Date: 20220419
  Receipt Date: 20220419
  Transmission Date: 20220721
  Serious: Yes (Other)
  Sender: FDA-Public Use
  Company Number: CN-SA-2022SA123387

PATIENT
  Age: 4 Month
  Sex: Female

DRUGS (2)
  1. VIGABATRIN [Suspect]
     Active Substance: VIGABATRIN
     Indication: Infantile spasms
     Dosage: PEAK DOSAGE WAS 150 MG/KG/DAY AND CUMULATIVE DOSAGE WAS 50.6G
     Route: 065
  2. TOPIRAMATE [Concomitant]
     Active Substance: TOPIRAMATE
     Indication: Infantile spasms
     Dosage: UNK
     Route: 065

REACTIONS (2)
  - Magnetic resonance imaging head abnormal [Unknown]
  - Cerebral disorder [Unknown]
